FAERS Safety Report 5940254-3 (Version None)
Quarter: 2008Q4

REPORT INFORMATION
  Report Type: 
  Country: None (occurrence: None)
  Receive Date: 20081031
  Receipt Date: 20081031
  Transmission Date: 20090506
  Serious: Yes (Death, Hospitalization)
  Sender: FDA-Public Use
  Company Number: None

PATIENT
  Sex: Female
  Weight: 130.2 kg

DRUGS (1)
  1. CYTARABINE [Suspect]
     Dosage: 42.84 MG
     Dates: end: 20081011

REACTIONS (4)
  - FEBRILE NEUTROPENIA [None]
  - HYPOTENSION [None]
  - KLEBSIELLA INFECTION [None]
  - SEPSIS [None]
